FAERS Safety Report 25757299 (Version 2)
Quarter: 2025Q3

REPORT INFORMATION
  Report Type: Report from Study
  Country: US (occurrence: US)
  Receive Date: 20250903
  Receipt Date: 20250911
  Transmission Date: 20251021
  Serious: Yes (Other)
  Sender: ABBVIE
  Company Number: US-ABBVIE-6441383

PATIENT
  Age: 27 Year
  Sex: Female

DRUGS (1)
  1. QULIPTA [Suspect]
     Active Substance: ATOGEPANT
     Indication: Migraine
     Route: 048

REACTIONS (13)
  - Seizure [Not Recovered/Not Resolved]
  - Fall [Not Recovered/Not Resolved]
  - Knee arthroplasty [Unknown]
  - Peroneal nerve palsy [Unknown]
  - Asthenia [Unknown]
  - Hypotension [Unknown]
  - Intervertebral disc protrusion [Unknown]
  - Pain [Not Recovered/Not Resolved]
  - Medical device implantation [Not Recovered/Not Resolved]
  - Peripheral nerve injury [Unknown]
  - Gait inability [Unknown]
  - Nerve compression [Unknown]
  - Skin discolouration [Unknown]

NARRATIVE: CASE EVENT DATE: 20020101
